FAERS Safety Report 6732063-2 (Version None)
Quarter: 2010Q2

REPORT INFORMATION
  Report Type: 
  Country: None (occurrence: None)
  Receive Date: 20100519
  Receipt Date: 20100511
  Transmission Date: 20101027
  Serious: Yes (Other)
  Sender: FDA-Public Use
  Company Number: US-JNJFOC-20100505992

PATIENT
  Age: 19 Month
  Sex: Female
  Weight: 10.43 kg

DRUGS (2)
  1. TYLENOL [Suspect]
     Route: 048
  2. TYLENOL [Suspect]
     Indication: PYREXIA
     Route: 048

REACTIONS (4)
  - DRUG INEFFECTIVE [None]
  - FEBRILE CONVULSION [None]
  - PRODUCT QUALITY ISSUE [None]
  - RESPIRATORY ARREST [None]
